FAERS Safety Report 23094413 (Version 2)
Quarter: 2023Q4

REPORT INFORMATION
  Report Type: Report from Study
  Country: US (occurrence: US)
  Receive Date: 20231023
  Receipt Date: 20231112
  Transmission Date: 20240110
  Serious: Yes (Other)
  Sender: FDA-Public Use
  Company Number: US-ABBVIE-5459003

PATIENT
  Sex: Female

DRUGS (2)
  1. RINVOQ [Suspect]
     Active Substance: UPADACITINIB
     Indication: Rheumatoid arthritis
     Dosage: EXTENDED RELEASE, STRENGTH: 15 MG
     Route: 048
     Dates: start: 202206, end: 2023
  2. RINVOQ [Suspect]
     Active Substance: UPADACITINIB
     Indication: Rheumatoid arthritis
     Dosage: EXTENDED RELEASE?STRENGTH: 15 MG?FIRST ADMIN DATE: 2023
     Route: 048

REACTIONS (7)
  - Foot deformity [Unknown]
  - Limb discomfort [Not Recovered/Not Resolved]
  - Rheumatoid arthritis [Unknown]
  - Post procedural infection [Recovered/Resolved]
  - Mastocytosis [Recovered/Resolved]
  - Musculoskeletal discomfort [Not Recovered/Not Resolved]
  - Muscle fatigue [Unknown]

NARRATIVE: CASE EVENT DATE: 20230101
